FAERS Safety Report 15493663 (Version 1)
Quarter: 2018Q4

REPORT INFORMATION
  Report Type: Spontaneous
  Country: FR (occurrence: FR)
  Receive Date: 20181012
  Receipt Date: 20181012
  Transmission Date: 20190205
  Serious: Yes (Other)
  Sender: FDA-Public Use
  Company Number: FR-UCBSA-2018044689

PATIENT
  Age: 30 Year
  Sex: Female
  Weight: 2.43 kg

DRUGS (3)
  1. EPITOMAX [Suspect]
     Active Substance: TOPIRAMATE
     Indication: EPILEPSY
     Dosage: UNK
     Dates: end: 20170516
  2. KEPPRA [Suspect]
     Active Substance: LEVETIRACETAM
     Indication: EPILEPSY
     Dosage: 500 MG, 2X/DAY (BID)
  3. URBANYL [Suspect]
     Active Substance: CLOBAZAM
     Indication: EPILEPSY
     Dosage: 50 MG, 2X/DAY (BID)

REACTIONS (2)
  - Pregnancy [Unknown]
  - Postpartum haemorrhage [Unknown]

NARRATIVE: CASE EVENT DATE: 201704
